FAERS Safety Report 7637848-6 (Version None)
Quarter: 2011Q3

REPORT INFORMATION
  Report Type: 
  Country: None (occurrence: None)
  Receive Date: 20110727
  Receipt Date: 20110719
  Transmission Date: 20111222
  Serious: Yes (Disabling, Other)
  Sender: FDA-Public Use
  Company Number: GB-JNJFOC-20110411054

PATIENT
  Sex: Female

DRUGS (5)
  1. MICONAZOLE NITRATE [Suspect]
     Indication: ACCIDENTAL EXPOSURE
     Route: 061
     Dates: start: 20110314
  2. CITALOPRAM HYDROBROMIDE [Concomitant]
     Indication: MOOD SWINGS
     Route: 065
     Dates: start: 20051206
  3. LEVOTHYROXINE SODIUM [Concomitant]
     Indication: HYPOTHYROIDISM
     Route: 065
     Dates: start: 20011024
  4. MICONAZOLE NITRATE [Suspect]
     Route: 061
  5. AMITRIPTYLINE HCL [Concomitant]
     Indication: PAIN
     Route: 065
     Dates: start: 20101004

REACTIONS (9)
  - SKIN HAEMORRHAGE [None]
  - ACCIDENTAL EXPOSURE [None]
  - DERMATITIS [None]
  - SWELLING FACE [None]
  - THERMAL BURN [None]
  - HYPERSENSITIVITY [None]
  - ERYTHEMA [None]
  - BLISTER [None]
  - CHEST PAIN [None]
